FAERS Safety Report 10262123 (Version 1)
Quarter: 2014Q2

REPORT INFORMATION
  Report Type: Spontaneous
  Country: US (occurrence: US)
  Receive Date: 20140626
  Receipt Date: 20140626
  Transmission Date: 20141212
  Serious: Yes (Life-Threatening, Hospitalization, Other)
  Sender: FDA-Public Use
  Company Number: US-VIIV HEALTHCARE LIMITED-A1077705A

PATIENT
  Age: 64 Year
  Sex: Female

DRUGS (3)
  1. ABACAVIR [Suspect]
     Indication: HIV INFECTION
     Route: 048
     Dates: start: 20140507, end: 20140618
  2. EPIVIR [Suspect]
     Indication: PRODUCT USED FOR UNKNOWN INDICATION
     Route: 065
  3. RALTEGRAVIR [Concomitant]
     Indication: PRODUCT USED FOR UNKNOWN INDICATION
     Route: 065

REACTIONS (7)
  - Renal failure [Unknown]
  - Hypersensitivity [Not Recovered/Not Resolved]
  - Pyrexia [Unknown]
  - Rash maculo-papular [Unknown]
  - Chills [Unknown]
  - Aspartate aminotransferase increased [None]
  - Blood alkaline phosphatase increased [None]
